FAERS Safety Report 15658193 (Version 1)
Quarter: 2018Q4

REPORT INFORMATION
  Report Type: Spontaneous
  Country: US (occurrence: US)
  Receive Date: 20181115
  Receipt Date: 20181115
  Transmission Date: 20190205
  Serious: No
  Sender: FDA-Public Use
  Company Number: None

PATIENT
  Age: 60 Year
  Sex: Male

DRUGS (1)
  1. TADALAFIL TAB 20 MG [Suspect]
     Active Substance: TADALAFIL
     Dates: start: 2018

REACTIONS (1)
  - Hospice care [None]

NARRATIVE: CASE EVENT DATE: 20181114
